FAERS Safety Report 24217935 (Version 1)
Quarter: 2024Q3

REPORT INFORMATION
  Report Type: Spontaneous
  Country: CN (occurrence: CN)
  Receive Date: 20240816
  Receipt Date: 20240816
  Transmission Date: 20241017
  Serious: Yes (Other)
  Sender: JOHNSON AND JOHNSON
  Company Number: CN-JNJFOC-20240816897

PATIENT

DRUGS (6)
  1. OPSUMIT [Suspect]
     Active Substance: MACITENTAN
     Indication: Product used for unknown indication
     Route: 048
  2. TADALAFIL [Concomitant]
     Active Substance: TADALAFIL
  3. TREPROSTINIL [Concomitant]
     Active Substance: TREPROSTINIL
  4. FUROSEMIDE [Concomitant]
     Active Substance: FUROSEMIDE
  5. RIOCIGUAT [Concomitant]
     Active Substance: RIOCIGUAT
  6. SILDENAFIL [Concomitant]
     Active Substance: SILDENAFIL

REACTIONS (69)
  - Asphyxia [Unknown]
  - Pancytopenia [Unknown]
  - Type 2 diabetes mellitus [Unknown]
  - Metastases to liver [Unknown]
  - Pancreatic carcinoma [Unknown]
  - Lactic acidosis [Unknown]
  - Arthritis bacterial [Unknown]
  - Pancreatitis acute [Unknown]
  - Hyperbilirubinaemia [Unknown]
  - Azotaemia [Unknown]
  - Immunodeficiency [Unknown]
  - Renal impairment [Unknown]
  - Immunodeficiency common variable [Unknown]
  - Hypothyroidism [Unknown]
  - Mixed connective tissue disease [Unknown]
  - Pathological fracture [Unknown]
  - Bladder cancer [Unknown]
  - Ovarian haemorrhage [Unknown]
  - Cardiorenal syndrome [Unknown]
  - Hepatic encephalopathy [Unknown]
  - Congestive hepatopathy [Unknown]
  - Enterocolitis [Unknown]
  - Hemiparesis [Unknown]
  - Acute left ventricular failure [Unknown]
  - Haemoglobin decreased [Unknown]
  - Aspartate aminotransferase increased [Unknown]
  - Alanine aminotransferase increased [Unknown]
  - Lung infiltration [Unknown]
  - Hypercapnia [Unknown]
  - Iron deficiency anaemia [Unknown]
  - Leukocytosis [Unknown]
  - Obesity [Unknown]
  - Ocular icterus [Unknown]
  - Tonsillitis [Unknown]
  - Abscess limb [Unknown]
  - Hypokinesia [Unknown]
  - Periorbital swelling [Unknown]
  - Blepharitis [Unknown]
  - Conjunctival discolouration [Unknown]
  - Intervertebral disc degeneration [Unknown]
  - Apathy [Unknown]
  - Discouragement [Unknown]
  - Feeling of despair [Unknown]
  - Multiple allergies [Unknown]
  - Yellow skin [Unknown]
  - Diabetic foot [Unknown]
  - Purpura [Unknown]
  - Non-cardiac chest pain [Unknown]
  - Urine odour abnormal [Unknown]
  - Hypertonic bladder [Unknown]
  - Vulvovaginal pain [Unknown]
  - Vaginal lesion [Unknown]
  - Varices oesophageal [Unknown]
  - Right ventricular hypertrophy [Unknown]
  - Jugular vein distension [Unknown]
  - Peripheral vascular disorder [Unknown]
  - Arteriosclerosis [Unknown]
  - Blood bilirubin increased [Unknown]
  - Blood creatinine increased [Unknown]
  - Haematocrit decreased [Unknown]
  - Red blood cell count decreased [Unknown]
  - Full blood count abnormal [Unknown]
  - White blood cell count decreased [Unknown]
  - Blood alkaline phosphatase increased [Unknown]
  - White blood cell count increased [Unknown]
  - Blood urea increased [Unknown]
  - Gamma-glutamyltransferase increased [Unknown]
  - N-terminal prohormone brain natriuretic peptide increased [Unknown]
  - Mental disorder [Unknown]
